FAERS Safety Report 7645549-3 (Version None)
Quarter: 2011Q3

REPORT INFORMATION
  Report Type: 
  Country: None (occurrence: None)
  Receive Date: 20110729
  Receipt Date: 20110719
  Transmission Date: 20111222
  Serious: Yes (Other)
  Sender: FDA-Public Use
  Company Number: US-ROCHE-757428

PATIENT
  Sex: Male
  Weight: 54.4 kg

DRUGS (1)
  1. ACCUTANE [Suspect]
     Indication: ACNE
     Route: 065
     Dates: start: 19820601, end: 19821201

REACTIONS (9)
  - INTESTINAL HAEMORRHAGE [None]
  - CROHN'S DISEASE [None]
  - ABDOMINAL PAIN [None]
  - INSOMNIA [None]
  - INTESTINAL OBSTRUCTION [None]
  - ANAEMIA [None]
  - RECTAL HAEMORRHAGE [None]
  - INFLAMMATORY BOWEL DISEASE [None]
  - DIZZINESS [None]
